FAERS Safety Report 9398907 (Version 3)
Quarter: 2013Q3

REPORT INFORMATION
  Report Type: Spontaneous
  Country: CN (occurrence: CN)
  Receive Date: 20130712
  Receipt Date: 20130722
  Transmission Date: 20140515
  Serious: Yes (Death)
  Sender: FDA-Public Use
  Company Number: CN-NAPPMUNDI-GBR-2013-0014102

PATIENT
  Age: 50 Year
  Sex: Female

DRUGS (6)
  1. MORPHINE SULFATE PR TABLET [Suspect]
     Indication: PAIN
     Dosage: 240 MG, DAILY
     Route: 048
  2. MORPHINE SULFATE PR TABLET [Suspect]
     Dosage: 220 MG, DAILY
     Route: 048
  3. MORPHINE SULFATE PR TABLET [Suspect]
     Dosage: 180 MG, DAILY
     Route: 048
  4. MORPHINE SULFATE [Concomitant]
     Dosage: 3 DF, DAILY
     Route: 042
  5. FENTANYL [Concomitant]
     Dosage: 5 PATCH, DAILY
     Route: 062
  6. FENTANYL CITRATE [Concomitant]
     Indication: SURGERY
     Dosage: 10 INJ, UNK
     Route: 042

REACTIONS (2)
  - Drug ineffective [Unknown]
  - Myocardial infarction [Fatal]
